FAERS Safety Report 15849046 (Version 2)
Quarter: 2025Q1

REPORT INFORMATION
  Report Type: Spontaneous
  Country: FR (occurrence: FR)
  Receive Date: 20190121
  Receipt Date: 20250114
  Transmission Date: 20250408
  Serious: Yes (Other)
  Sender: SAMSUNG BIOEPIS
  Company Number: FR-JNJFOC-20180721075

PATIENT
  Age: 47 Year
  Sex: Female

DRUGS (8)
  1. INFLIXIMAB [Suspect]
     Active Substance: INFLIXIMAB
     Indication: Colitis ulcerative
     Route: 042
  2. INFLIXIMAB [Suspect]
     Active Substance: INFLIXIMAB
     Route: 042
  3. ADALIMUMAB [Suspect]
     Active Substance: ADALIMUMAB
     Indication: Colitis ulcerative
     Dosage: 40 MG, Q2W (160/80/40 THEN 40 MG/2W, FOR 2 MONTHS;
  4. ADALIMUMAB [Suspect]
     Active Substance: ADALIMUMAB
     Dosage: 80 MG, Q2W (160/80/40 THEN 40 MG/2W, FOR 2 MONTHS);
  5. ADALIMUMAB [Suspect]
     Active Substance: ADALIMUMAB
     Dosage: 160/80/40 THEN 40 MG/2W, FOR 2 MONTHS;
  6. MYCOPHENOLATE MOFETIL [Suspect]
     Active Substance: MYCOPHENOLATE MOFETIL
     Indication: Colitis ulcerative
  7. TACROLIMUS [Suspect]
     Active Substance: TACROLIMUS
     Indication: Colitis ulcerative
  8. MESALAMINE [Concomitant]
     Active Substance: MESALAMINE
     Indication: Colitis ulcerative

REACTIONS (5)
  - Colorectal cancer [Unknown]
  - Drug ineffective [Unknown]
  - Cytomegalovirus infection [Unknown]
  - Cholangitis [Unknown]
  - Colitis ulcerative [Not Recovered/Not Resolved]
